FAERS Safety Report 24644730 (Version 2)
Quarter: 2024Q4

REPORT INFORMATION
  Report Type: Spontaneous
  Country: NL (occurrence: NL)
  Receive Date: 20241121
  Receipt Date: 20241125
  Transmission Date: 20250115
  Serious: No
  Sender: SANDOZ
  Company Number: NL-002147023-NVSC2024NL222367

PATIENT
  Age: 71 Year
  Sex: Male

DRUGS (7)
  1. LEVETIRACETAM [Suspect]
     Active Substance: LEVETIRACETAM
     Indication: Seizure
     Dosage: 1000 MG, QD, 500 MG, BID FOR 3 MONTHS
     Route: 065
  2. PREDNISONE [Suspect]
     Active Substance: PREDNISONE
     Indication: Product used for unknown indication
     Dosage: 60 MG, QD
     Route: 065
  3. PREDNISONE [Suspect]
     Active Substance: PREDNISONE
     Dosage: UNK, REDUCING WEEKLY BY 5 MG
     Route: 065
  4. CICLESONIDE [Concomitant]
     Active Substance: CICLESONIDE
     Indication: Chronic obstructive pulmonary disease
     Dosage: UNK
     Route: 065
  5. GLYCOPYRRONIUM\INDACATEROL [Concomitant]
     Active Substance: GLYCOPYRRONIUM\INDACATEROL
     Indication: Chronic obstructive pulmonary disease
     Dosage: UNK
     Route: 065
  6. METHYLPREDNISOLONE [Concomitant]
     Active Substance: METHYLPREDNISOLONE
     Indication: Cerebral amyloid angiopathy
     Dosage: 1 MG FOR 3 DAYS
     Route: 042
  7. ALBUTEROL [Concomitant]
     Active Substance: ALBUTEROL
     Indication: Chronic obstructive pulmonary disease
     Dosage: UNK
     Route: 065

REACTIONS (1)
  - Agitation [Recovered/Resolved]
